FAERS Safety Report 12435039 (Version 2)
Quarter: 2016Q4

REPORT INFORMATION
  Report Type: Spontaneous
  Country: US (occurrence: US)
  Receive Date: 20160603
  Receipt Date: 20161212
  Transmission Date: 20170207
  Serious: No
  Sender: FDA-Public Use
  Company Number: US-ROCHE-1662487

PATIENT
  Sex: Female

DRUGS (10)
  1. MELOXICAM. [Concomitant]
     Active Substance: MELOXICAM
  2. LUTERA [Concomitant]
     Active Substance: ETHINYL ESTRADIOL\LEVONORGESTREL
  3. FLUTICASONE [Concomitant]
     Active Substance: FLUTICASONE\FLUTICASONE PROPIONATE
  4. ACTEMRA [Suspect]
     Active Substance: TOCILIZUMAB
     Indication: RHEUMATOID ARTHRITIS
     Route: 058
     Dates: start: 20150902
  5. HYDROXYCHLOROQUINE [Concomitant]
     Active Substance: HYDROXYCHLOROQUINE
  6. FOLIC ACID. [Concomitant]
     Active Substance: FOLIC ACID
  7. LEUCOVORIN. [Concomitant]
     Active Substance: LEUCOVORIN
  8. LORATADINE. [Concomitant]
     Active Substance: LORATADINE
  9. METHOTREXATE. [Suspect]
     Active Substance: METHOTREXATE
     Indication: PRODUCT USED FOR UNKNOWN INDICATION
     Route: 065
  10. ACTEMRA [Suspect]
     Active Substance: TOCILIZUMAB
     Route: 058
     Dates: start: 20150902

REACTIONS (5)
  - Swelling [Unknown]
  - Alopecia [Unknown]
  - Rash [Unknown]
  - Stomatitis [Unknown]
  - Hyperaesthesia [Unknown]
